FAERS Safety Report 9924734 (Version 3)
Quarter: 2014Q2

REPORT INFORMATION
  Report Type: Spontaneous
  Country: DE (occurrence: DE)
  Receive Date: 20140226
  Receipt Date: 20140428
  Transmission Date: 20141212
  Serious: Yes (Other)
  Sender: FDA-Public Use
  Company Number: DE-JNJFOC-20140213706

PATIENT
  Age: 91 Year
  Sex: Female
  Weight: 60 kg

DRUGS (6)
  1. XARELTO [Suspect]
     Indication: EMBOLISM VENOUS
     Route: 048
     Dates: start: 20131216
  2. XARELTO [Suspect]
     Indication: DEEP VEIN THROMBOSIS
     Route: 048
     Dates: start: 20131216
  3. FENTANYL [Concomitant]
     Indication: SPINAL FRACTURE
     Route: 062
     Dates: start: 20131029
  4. PIPAMPERONE [Concomitant]
     Indication: RESTLESSNESS
     Route: 065
  5. PIPAMPERONE [Concomitant]
     Indication: SLEEP DISORDER
     Route: 065
  6. MELPERON [Concomitant]
     Indication: CONFUSIONAL STATE
     Route: 065
     Dates: start: 20140114

REACTIONS (3)
  - Thrombocytopenia [Not Recovered/Not Resolved]
  - Leukopenia [Not Recovered/Not Resolved]
  - Incorrect dose administered [Unknown]
